FAERS Safety Report 10032619 (Version 2)
Quarter: 2014Q1

REPORT INFORMATION
  Report Type: Report from Study
  Country: US (occurrence: US)
  Receive Date: 20140324
  Receipt Date: 20140324
  Transmission Date: 20141002
  Serious: Yes (Disabling)
  Sender: FDA-Public Use
  Company Number: PHEH2014US002750

PATIENT
  Age: 58 Year
  Sex: Female
  Weight: 44.44 kg

DRUGS (17)
  1. TOBI [Suspect]
     Indication: CYSTIC FIBROSIS
     Dosage: 300 MG, QD
     Route: 055
     Dates: start: 20140101, end: 20140107
  2. TOBI [Suspect]
     Indication: PNEUMONIA STAPHYLOCOCCAL
  3. TOBI [Suspect]
     Indication: BRONCHIECTASIS
  4. INSULIN ASPART [Concomitant]
     Indication: DIABETES MELLITUS
     Dosage: UNK UKN, UNK
     Route: 058
  5. INSULIN GLARGINE [Concomitant]
     Indication: DIABETES MELLITUS
     Dosage: UNK UKN, UNK
  6. PULMOZYME [Concomitant]
     Route: 055
  7. PANCRELIPASE [Concomitant]
     Indication: CYSTIC FIBROSIS
     Dosage: 27000 UNITS (2 GM WITH MEAL)
     Route: 048
  8. LEVOTHYROXINE [Concomitant]
     Indication: HYPOTHYROIDISM
     Dosage: 0.175 UKN
     Route: 048
  9. SALINE [Concomitant]
     Indication: CYSTIC FIBROSIS
     Dosage: UKN, BID
     Route: 055
  10. SALINE [Concomitant]
     Indication: BRONCHIECTASIS
  11. INSULIN [Concomitant]
     Indication: CYSTIC FIBROSIS
     Dosage: UNK UKN, UNK
  12. INSULIN [Concomitant]
     Indication: DIABETES MELLITUS
  13. AZITHROMYCIN [Concomitant]
     Indication: CYSTIC FIBROSIS
     Dosage: 3 X WR
     Route: 048
  14. AZITHROMYCIN [Concomitant]
     Indication: PNEUMONIA STAPHYLOCOCCAL
  15. ALBUTEROL [Concomitant]
     Indication: DYSPNOEA
     Dosage: UNK UKN, PRN
     Route: 055
  16. ALBUTEROL [Concomitant]
     Indication: CYSTIC FIBROSIS
  17. ALBUTEROL [Concomitant]
     Indication: BRONCHIECTASIS

REACTIONS (3)
  - Wheezing [Recovered/Resolved]
  - Chest discomfort [Recovered/Resolved]
  - Dyspnoea [Recovered/Resolved]
